FAERS Safety Report 8530065 (Version 3)
Quarter: 2013Q1

REPORT INFORMATION
  Report Type: Spontaneous
  Country: CA (occurrence: CA)
  Receive Date: 20120425
  Receipt Date: 20130304
  Transmission Date: 20140127
  Serious: Yes (Other)
  Sender: FDA-Public Use
  Company Number: CA-GLAXOSMITHKLINE-A0974122A

PATIENT
  Age: 55 Year
  Sex: Female

DRUGS (5)
  1. TYKERB [Suspect]
     Indication: BREAST CANCER
     Dosage: 1250MG PER DAY
     Route: 048
     Dates: start: 20120228, end: 201302
  2. XELODA [Concomitant]
     Dosage: 1500MG TWICE PER DAY
     Route: 065
  3. CIPRALEX [Concomitant]
     Route: 065
  4. VERAPAMIL [Concomitant]
     Route: 065
  5. ATIVAN [Concomitant]
     Route: 065

REACTIONS (11)
  - Skin atrophy [Not Recovered/Not Resolved]
  - Dyspepsia [Recovered/Resolved]
  - Ingrowing nail [Unknown]
  - Palmar-plantar erythrodysaesthesia syndrome [Unknown]
  - Skin fissures [Not Recovered/Not Resolved]
  - Pain in extremity [Not Recovered/Not Resolved]
  - Skin exfoliation [Not Recovered/Not Resolved]
  - Erythema [Not Recovered/Not Resolved]
  - Dry skin [Unknown]
  - Gait disturbance [Unknown]
  - Breast cancer metastatic [Unknown]
